FAERS Safety Report 25999916 (Version 2)
Quarter: 2025Q4

REPORT INFORMATION
  Report Type: Report from Study
  Country: EG (occurrence: EG)
  Receive Date: 20251105
  Receipt Date: 20251118
  Transmission Date: 20260118
  Serious: Yes (Life-Threatening, Hospitalization, Other)
  Sender: BIOCON
  Company Number: EG-EGYPT REGULATORY AGENCY (CAPA)-BBL2025002019

PATIENT

DRUGS (4)
  1. HULIO [Interacting]
     Active Substance: ADALIMUMAB-FKJP
     Indication: Rheumatoid arthritis
     Dosage: 40 MG, Q2W, ONE PEN EVERY 2 WEEKS
     Route: 058
     Dates: start: 20250101, end: 202502
  2. HULIO [Interacting]
     Active Substance: ADALIMUMAB-FKJP
  3. ENOXAPARIN SODIUM [Interacting]
     Active Substance: ENOXAPARIN SODIUM
     Indication: Product used for unknown indication
     Dosage: UNK
     Route: 065
  4. LEFLUNOMIDE [Interacting]
     Active Substance: LEFLUNOMIDE
     Indication: Product used for unknown indication
     Dosage: UNK
     Route: 065

REACTIONS (8)
  - Drug interaction [Unknown]
  - Sepsis [Unknown]
  - Rheumatoid arthritis [Not Recovered/Not Resolved]
  - Symptom recurrence [Not Recovered/Not Resolved]
  - Therapy interrupted [Unknown]
  - Wrong technique in device usage process [Unknown]
  - Product quality issue [Unknown]
  - Inability to afford medication [Unknown]
